FAERS Safety Report 8545707-X (Version None)
Quarter: 2012Q3

REPORT INFORMATION
  Report Type: 
  Country: None (occurrence: None)
  Receive Date: 20120727
  Receipt Date: 20120723
  Transmission Date: 20120928
  Serious: Yes (Disabling)
  Sender: FDA-Public Use
  Company Number: US-ROCHE-1041814

PATIENT
  Sex: Female
  Weight: 64.5 kg

DRUGS (7)
  1. VITAMIN D [Concomitant]
     Route: 048
  2. ADVIL [Concomitant]
     Indication: PAIN
     Route: 048
     Dates: start: 20110101
  3. NEXIUM [Concomitant]
     Indication: DYSPEPSIA
     Route: 048
     Dates: start: 20110101
  4. PEGASYS [Suspect]
     Indication: HEPATITIS C
     Route: 058
     Dates: start: 20110607, end: 20110824
  5. LAMOTRIGINE [Concomitant]
     Indication: BIPOLAR DISORDER
     Route: 048
     Dates: start: 20060301
  6. BLINDED RO 5466731 (HCV NS5B INHIBITOR) [Suspect]
     Indication: HEPATITIS C
     Dates: start: 20110607, end: 20110824
  7. COPEGUS [Suspect]
     Indication: HEPATITIS C
     Route: 048
     Dates: start: 20110607, end: 20110824

REACTIONS (1)
  - EMOTIONAL DISTRESS [None]
